FAERS Safety Report 4639377-0 (Version None)
Quarter: 2005Q2

REPORT INFORMATION
  Report Type: 
  Country: None (occurrence: None)
  Receive Date: 20050418
  Receipt Date: 20050406
  Transmission Date: 20051028
  Serious: Yes (Hospitalization)
  Sender: FDA-Public Use
  Company Number: 2005AD000025

PATIENT
  Age: 70 Year
  Sex: Male

DRUGS (5)
  1. KEFLEX [Suspect]
     Indication: BACTERAEMIA
     Dosage: 500 MG; Q6H; PO
     Route: 048
     Dates: start: 19730501, end: 19730601
  2. TOLBUTAMIDE [Concomitant]
  3. AMPICILLIN [Concomitant]
  4. CEPHALOTHIN [Concomitant]
  5. SULFONAMIDES [Concomitant]

REACTIONS (9)
  - ANOREXIA [None]
  - CHILLS [None]
  - DEHYDRATION [None]
  - HEPATOTOXICITY [None]
  - HYPERKALAEMIA [None]
  - NEPHROPATHY TOXIC [None]
  - PYREXIA [None]
  - RENAL FAILURE ACUTE [None]
  - SOMNOLENCE [None]
